FAERS Safety Report 5074541-0 (Version None)
Quarter: 2006Q3

REPORT INFORMATION
  Report Type: 
  Country: None (occurrence: None)
  Receive Date: 20060803
  Receipt Date: 20060724
  Transmission Date: 20061208
  Serious: Yes (Other)
  Sender: FDA-Public Use
  Company Number: 06NIP00114

PATIENT
  Age: 74 Year
  Sex: Female
  Weight: 77.5651 kg

DRUGS (4)
  1. NIPENT [Suspect]
     Indication: CHRONIC LYMPHOCYTIC LEUKAEMIA
     Dosage: -- (1.25 MG/M2, DAYS 2, 3, EVERY 21 DAYS), INTRAVENOUS
     Route: 042
     Dates: start: 20060221, end: 20060628
  2. RITUXIMAB (RITUXIMAB) (RITUXIMAB) [Suspect]
     Indication: CHRONIC LYMPHOCYTIC LEUKAEMIA
     Dosage: -- (375 MG/M2, DAY ONE EVERY 21 DAYS), INTRAVENOUS
     Route: 042
  3. GEMCITABINE (GEMCITABINE) (GEMCITABINE) [Suspect]
     Indication: CHRONIC LYMPHOCYTIC LEUKAEMIA
     Dosage: -- (750 MG/M2, DAY 2 EVERY 21 DAYS)
     Dates: start: 20060221, end: 20060627
  4. NEUPOGEN [Suspect]
     Indication: CHRONIC LYMPHOCYTIC LEUKAEMIA
     Dosage: -- (300 MCG, DAILY X 7-10 DAYS STARTING ON DAY 5 Q21D)
     Dates: start: 20060224, end: 20060628

REACTIONS (3)
  - CHEST PAIN [None]
  - PERICARDIAL EFFUSION [None]
  - PULMONARY HYPERTENSION [None]
